FAERS Safety Report 14777250 (Version 4)
Quarter: 2018Q2

REPORT INFORMATION
  Report Type: Report from Study
  Country: US (occurrence: US)
  Receive Date: 20180419
  Receipt Date: 20180529
  Transmission Date: 20180711
  Serious: No
  Sender: FDA-Public Use
  Company Number: US-009507513-1804USA007993

PATIENT
  Age: 55 Year
  Sex: Female

DRUGS (4)
  1. BUSPIRONE HYDROCHLORIDE. [Suspect]
     Active Substance: BUSPIRONE HYDROCHLORIDE
  2. BELSOMRA [Suspect]
     Active Substance: SUVOREXANT
     Indication: INSOMNIA
     Dosage: 20MG DAILY
     Route: 048
     Dates: start: 201712
  3. DEPAKOTE [Suspect]
     Active Substance: DIVALPROEX SODIUM
  4. CLOZARIL [Suspect]
     Active Substance: CLOZAPINE

REACTIONS (5)
  - Drug dose omission [Unknown]
  - Product availability issue [Unknown]
  - Adverse drug reaction [Unknown]
  - Insomnia [Not Recovered/Not Resolved]
  - Irritability [Unknown]

NARRATIVE: CASE EVENT DATE: 20180418
